FAERS Safety Report 13035229 (Version 2)
Quarter: 2016Q4

REPORT INFORMATION
  Report Type: Spontaneous
  Country: US (occurrence: US)
  Receive Date: 20161216
  Receipt Date: 20161226
  Transmission Date: 20170207
  Serious: Yes (Death, Other)
  Sender: FDA-Public Use
  Company Number: US-009507513-1612USA008075

PATIENT
  Age: 80 Year
  Sex: Male

DRUGS (2)
  1. INTEGRILIN [Suspect]
     Active Substance: EPTIFIBATIDE
  2. HEPARIN [Suspect]
     Active Substance: HEPARIN SODIUM
     Indication: INTRA-AORTIC BALLOON PLACEMENT

REACTIONS (4)
  - Pulmonary haemorrhage [Fatal]
  - Hypoxia [Fatal]
  - Cardiac arrest [Fatal]
  - Hypotension [Fatal]
